FAERS Safety Report 4711794-X (Version None)
Quarter: 2005Q3

REPORT INFORMATION
  Report Type: 
  Country: None (occurrence: None)
  Receive Date: 20050712
  Receipt Date: 20050630
  Transmission Date: 20060218
  Serious: Yes (Hospitalization, Other)
  Sender: FDA-Public Use
  Company Number: US-JNJFOC-20050405697

PATIENT
  Sex: Female
  Weight: 61.24 kg

DRUGS (5)
  1. REMICADE [Suspect]
     Route: 042
  2. PREDNISONE TAB [Concomitant]
  3. FENTANYL [Concomitant]
  4. PERCOCET [Concomitant]
  5. PERCOCET [Concomitant]

REACTIONS (7)
  - BREAST MASS [None]
  - BRONCHITIS [None]
  - CARDIAC DISORDER [None]
  - DEPRESSION [None]
  - DRUG INEFFECTIVE [None]
  - GASTROOESOPHAGEAL REFLUX DISEASE [None]
  - LUNG DISORDER [None]
